FAERS Safety Report 17347048 (Version 1)
Quarter: 2020Q1

REPORT INFORMATION
  Report Type: Spontaneous
  Country: US (occurrence: US)
  Receive Date: 20200129
  Receipt Date: 20200129
  Transmission Date: 20200409
  Serious: Yes (Other)
  Sender: FDA-Public Use
  Company Number: None

PATIENT
  Age: 77 Year
  Sex: Male
  Weight: 74.7 kg

DRUGS (10)
  1. TRAZODONE [Concomitant]
     Active Substance: TRAZODONE HYDROCHLORIDE
  2. FENTANYL. [Concomitant]
     Active Substance: FENTANYL
  3. GABAPENTIN. [Concomitant]
     Active Substance: GABAPENTIN
  4. ENBREL [Concomitant]
     Active Substance: ETANERCEPT
  5. BUDESONIDE. [Concomitant]
     Active Substance: BUDESONIDE
  6. METOPROLOL. [Concomitant]
     Active Substance: METOPROLOL
  7. RETACRIT [Suspect]
     Active Substance: EPOETIN ALFA-EPBX
     Indication: MYELODYSPLASTIC SYNDROME
     Dosage: ?          OTHER FREQUENCY:WEEKLY;?
     Route: 042
     Dates: start: 20190730, end: 20200128
  8. VITAMIN B12 [Concomitant]
     Active Substance: CYANOCOBALAMIN
  9. PREDNISONE. [Concomitant]
     Active Substance: PREDNISONE
  10. BISACODYL. [Concomitant]
     Active Substance: BISACODYL

REACTIONS (1)
  - Hospice care [None]

NARRATIVE: CASE EVENT DATE: 20200129
